FAERS Safety Report 9279027 (Version 1)
Quarter: 2013Q2

REPORT INFORMATION
  Report Type: Spontaneous
  Country: GB (occurrence: GB)
  Receive Date: 20130508
  Receipt Date: 20130508
  Transmission Date: 20140414
  Serious: Yes (Disabling, Other)
  Sender: FDA-Public Use
  Company Number: GB-ABBOTT-13X-167-1085787-00

PATIENT
  Sex: Female

DRUGS (1)
  1. EPILIM CHRONO [Suspect]
     Indication: MATERNAL EXPOSURE TIMING UNSPECIFIED
     Route: 064

REACTIONS (8)
  - Foetal anticonvulsant syndrome [Unknown]
  - Attention deficit/hyperactivity disorder [Unknown]
  - Sensory disturbance [Unknown]
  - Emotional disorder [Unknown]
  - Autism spectrum disorder [Unknown]
  - Developmental delay [Unknown]
  - Abnormal behaviour [Unknown]
  - Foetal exposure during pregnancy [Unknown]
